FAERS Safety Report 23241645 (Version 2)
Quarter: 2024Q1

REPORT INFORMATION
  Report Type: Report from Study
  Country: FR (occurrence: FR)
  Receive Date: 20231129
  Receipt Date: 20240209
  Transmission Date: 20240409
  Serious: Yes (Other)
  Sender: FDA-Public Use
  Company Number: None

PATIENT
  Age: 78 Year
  Sex: Female
  Weight: 76 kg

DRUGS (5)
  1. GEMCITABINE [Suspect]
     Active Substance: GEMCITABINE
     Indication: Cholangiocarcinoma
     Dosage: 1860 MILLIGRAM (ON DAYS 1 AND 8 OF EACH CYCLE)
     Route: 042
     Dates: start: 20230105, end: 20230622
  2. CISPLATIN [Suspect]
     Active Substance: CISPLATIN
     Indication: Cholangiocarcinoma
     Dosage: 46.5 MILLIGRAM (ON DAYS 1 AND 8 OF EACH 21-DAY CYCLE)
     Route: 042
     Dates: start: 20230105, end: 20230112
  3. CISPLATIN [Suspect]
     Active Substance: CISPLATIN
     Dosage: 35 MILLIGRAM (ON DAYS 1 AND 8 OF EACH 21-DAY CYCLE)
     Route: 042
     Dates: start: 20230126, end: 20230223
  4. IMFINZI [Suspect]
     Active Substance: DURVALUMAB
     Indication: Cholangiocarcinoma
     Dosage: 1500 MILLIGRAM, Q3W
     Route: 042
     Dates: start: 20230105
  5. IRBESARTAN [Concomitant]
     Active Substance: IRBESARTAN
     Indication: Hypertension
     Dosage: 150 MILLIGRAM
     Route: 065

REACTIONS (7)
  - Anaemia [Recovered/Resolved]
  - Peripheral sensory neuropathy [Not Recovered/Not Resolved]
  - Acute kidney injury [Recovered/Resolved]
  - Vascular purpura [Recovered/Resolved]
  - Decreased appetite [Recovered/Resolved]
  - Nausea [Recovered/Resolved]
  - Asthenia [Recovered/Resolved]

NARRATIVE: CASE EVENT DATE: 20230101
